FAERS Safety Report 9579904 (Version 1)
Quarter: 2013Q3

REPORT INFORMATION
  Report Type: Spontaneous
  Country: US (occurrence: None)
  Receive Date: 20130930
  Receipt Date: 20130930
  Transmission Date: 20140515
  Serious: Yes (Disabling, Other)
  Sender: FDA-Public Use
  Company Number: None

PATIENT
  Age: 49 Year
  Sex: Female
  Weight: 95.26 kg

DRUGS (2)
  1. BUPROPRION SR [Suspect]
     Indication: DEPRESSION
     Dosage: 1 PILL
     Route: 048
  2. BUPROPRION SR 150 MG MYLAN [Suspect]
     Indication: DEPRESSION
     Route: 048

REACTIONS (7)
  - Product substitution issue [None]
  - Feeling abnormal [None]
  - Sensation of heaviness [None]
  - Hearing impaired [None]
  - Fatigue [None]
  - Depression [None]
  - Impaired work ability [None]
